FAERS Safety Report 8472580-0 (Version None)
Quarter: 2012Q2

REPORT INFORMATION
  Report Type: 
  Country: None (occurrence: None)
  Receive Date: 20120627
  Receipt Date: 20120327
  Transmission Date: 20120825
  Serious: No
  Sender: FDA-Public Use
  Company Number: US-AMGEN-USASP2012015981

PATIENT
  Age: 54 Year
  Sex: Female

DRUGS (4)
  1. HEPARIN [Concomitant]
     Indication: DIALYSIS
     Dosage: 2 ML, 2 TIMES/WK
     Dates: start: 20100911
  2. VENOFER [Concomitant]
     Indication: IRON DEFICIENCY
     Dosage: 100 MG, 2 TIMES/WK
     Dates: start: 20120309, end: 20120319
  3. SODIUM BICARBONATE [Concomitant]
     Indication: ACIDOSIS
     Dosage: 650 MG, BID
     Route: 048
     Dates: start: 20110916
  4. EPOGEN [Suspect]
     Indication: RENAL FAILURE CHRONIC
     Dosage: 7600 IU, 2 TIMES/WK
     Route: 042
     Dates: start: 20120305, end: 20120322

REACTIONS (1)
  - MEDICATION ERROR [None]
